FAERS Safety Report 6528271-6 (Version None)
Quarter: 2010Q1

REPORT INFORMATION
  Report Type: 
  Country: None (occurrence: None)
  Receive Date: 20100106
  Receipt Date: 20091228
  Transmission Date: 20100710
  Serious: Yes (Life-Threatening, Other)
  Sender: FDA-Public Use
  Company Number: JP-JNJFOC-20100100525

PATIENT
  Sex: Female

DRUGS (9)
  1. CRAVIT [Suspect]
     Indication: WOUND INFECTION
     Route: 048
  2. GASTER [Suspect]
     Indication: PROPHYLAXIS AGAINST GASTROINTESTINAL ULCER
     Route: 048
  3. LIPOVAS [Suspect]
     Indication: LIPID METABOLISM DISORDER
     Route: 048
  4. HERBESSER [Suspect]
     Indication: HYPERTENSION
     Route: 048
  5. NORVASC [Concomitant]
     Indication: HYPERTENSION
     Route: 048
  6. BLOPRESS [Concomitant]
     Indication: HYPERTENSION
     Route: 048
  7. PANALDINE [Concomitant]
     Indication: CEREBRAL INFARCTION
     Route: 048
  8. PLETAL [Concomitant]
     Indication: ARTERITIS OBLITERANS
     Route: 048
  9. METFORMIN HCL [Concomitant]
     Indication: DIABETES MELLITUS
     Route: 048

REACTIONS (4)
  - ELECTROCARDIOGRAM QT PROLONGED [None]
  - GASTROENTERITIS [None]
  - VENTRICULAR FIBRILLATION [None]
  - VENTRICULAR TACHYCARDIA [None]
